FAERS Safety Report 6039522-9 (Version None)
Quarter: 2009Q1

REPORT INFORMATION
  Report Type: 
  Country: None (occurrence: None)
  Receive Date: 20090107
  Receipt Date: 20081230
  Transmission Date: 20090719
  Serious: Yes (Hospitalization)
  Sender: FDA-Public Use
  Company Number: 200814470

PATIENT
  Age: 47 Year
  Sex: Female

DRUGS (13)
  1. GAMMAGARD [Suspect]
     Indication: IMMUNODEFICIENCY
     Dosage: SC
     Route: 058
     Dates: start: 20081201
  2. MOBIC [Concomitant]
  3. PROZAC [Concomitant]
  4. MUCINEX [Concomitant]
  5. POTASSIUM CHLORIDE [Concomitant]
  6. WELLBUTRIN [Concomitant]
  7. CALTRATE + D /00944201/ [Concomitant]
  8. XANAX [Concomitant]
  9. FLEXERIL [Concomitant]
  10. ZOCOR [Concomitant]
  11. HYDROCODONE BITARTRATE [Concomitant]
  12. FENTANYL [Concomitant]
  13. ANTIBIOTIC [Concomitant]

REACTIONS (5)
  - CHEST DISCOMFORT [None]
  - CHILLS [None]
  - DYSPNOEA [None]
  - FEELING COLD [None]
  - PYREXIA [None]
